FAERS Safety Report 13141828 (Version 3)
Quarter: 2017Q2

REPORT INFORMATION
  Report Type: Spontaneous
  Country: CA (occurrence: CA)
  Receive Date: 20170123
  Receipt Date: 20170502
  Transmission Date: 20170830
  Serious: Yes (Hospitalization, Other)
  Sender: FDA-Public Use
  Company Number: CA-ELI_LILLY_AND_COMPANY-CA201701005507

PATIENT
  Sex: Male
  Weight: 132.4 kg

DRUGS (55)
  1. GENOTROPIN [Suspect]
     Active Substance: SOMATROPIN
     Indication: GROWTH HORMONE DEFICIENCY
     Dosage: 0.6 MG, QD
     Route: 058
     Dates: start: 201604
  2. CORTEF [Suspect]
     Active Substance: HYDROCORTISONE
     Dosage: 30 MG, EACH MORNING
     Route: 048
  3. CORTEF [Suspect]
     Active Substance: HYDROCORTISONE
     Dosage: 15 MG, OTHER AFTERNOON
     Route: 048
  4. CORTEF [Suspect]
     Active Substance: HYDROCORTISONE
     Dosage: 5 MG, EACH EVENING
     Route: 048
  5. VITAMIN D [Concomitant]
     Active Substance: CHOLECALCIFEROL
     Dosage: 60000 U, MONTHLY (1/M)
     Route: 065
  6. GABAPENTINE [Concomitant]
     Active Substance: GABAPENTIN
     Dosage: 600 MG, EACH EVENING
     Route: 065
  7. VIT E                              /00110501/ [Concomitant]
     Active Substance: TOCOPHEROL
     Dosage: 400 MG, QD
     Route: 065
  8. SYNTHROID [Concomitant]
     Active Substance: LEVOTHYROXINE SODIUM
     Dosage: 100 UG, UNKNOWN
     Route: 048
  9. NORVASC [Suspect]
     Active Substance: AMLODIPINE BESYLATE
     Dosage: 20 MG, BID
     Route: 048
  10. AMOXICILLINE                       /00249602/ [Concomitant]
     Active Substance: AMOXICILLIN
     Indication: TENDONITIS
     Dosage: UNK, UNKNOWN
     Route: 065
     Dates: end: 20170104
  11. ASPIRIN                            /00002701/ [Concomitant]
     Active Substance: ASPIRIN
     Dosage: 81 MG, EACH EVENING
     Route: 065
     Dates: start: 201606
  12. TARGIN [Concomitant]
     Active Substance: NALOXONE HYDROCHLORIDE\OXYCODONE HYDROCHLORIDE
     Dosage: 3 DF, BID
     Route: 065
  13. DULCOLAX (BISACODYL) [Concomitant]
     Active Substance: BISACODYL
     Dosage: 10 MG, EACH EVENING
     Route: 065
  14. CLOBETASOL [Concomitant]
     Active Substance: CLOBETASOL
     Indication: NODULE
     Dosage: UNK, UNKNOWN
     Route: 065
  15. BASAGLAR [Suspect]
     Active Substance: INSULIN GLARGINE
     Dosage: 8 U, EACH EVENING
     Route: 058
  16. CYTOMEL [Suspect]
     Active Substance: LIOTHYRONINE SODIUM
     Dosage: 0.5 MG, UNKNOWN
     Route: 065
  17. NORVASC [Suspect]
     Active Substance: AMLODIPINE BESYLATE
     Indication: PRODUCT USED FOR UNKNOWN INDICATION
     Dosage: 5 MG, BID
     Route: 048
     Dates: start: 201602
  18. MOXIFLOXACIN. [Suspect]
     Active Substance: MOXIFLOXACIN
     Indication: TENDONITIS
     Dosage: UNK, UNKNOWN
     Route: 065
  19. VITAMIN C [Concomitant]
     Active Substance: ASCORBIC ACID
     Dosage: 500 MG, QD
     Route: 065
  20. CALCIUM [Concomitant]
     Active Substance: CALCIUM
     Dosage: 600 MG, EACH EVENING
     Route: 065
  21. TESTOSTERONE. [Concomitant]
     Active Substance: TESTOSTERONE
     Dosage: UNK, QID
     Route: 065
  22. MAGNESIUM GLYCINATE [Concomitant]
     Active Substance: MAGNESIUM GLYCINATE
     Dosage: 400 MG, QD
     Route: 065
  23. COQ 10 [Concomitant]
     Active Substance: UBIDECARENONE
     Dosage: UNK, QD
     Route: 065
  24. VITAMIN B12 [Concomitant]
     Active Substance: CYANOCOBALAMIN
     Dosage: 2500 UG, QD
     Route: 065
  25. FUCIDIN                            /00065701/ [Concomitant]
     Indication: WOUND
     Dosage: UNK, UNKNOWN
     Route: 065
  26. NORVASC [Suspect]
     Active Substance: AMLODIPINE BESYLATE
     Dosage: 2.5 MG, IN AM AND 2.5 IN PM
     Route: 048
  27. ELTROXIN [Concomitant]
     Active Substance: LEVOTHYROXINE
     Dosage: 100 UG, QD
     Route: 065
     Dates: start: 2001
  28. OLMETEC [Concomitant]
     Active Substance: OLMESARTAN MEDOXOMIL
     Dosage: 20 MG, BID
     Route: 065
     Dates: start: 201602
  29. TECTA [Concomitant]
     Active Substance: PANTOPRAZOLE MAGNESIUM
     Dosage: 40 MG, BID
     Route: 065
     Dates: start: 2014
  30. REACTINE                           /00884302/ [Concomitant]
     Active Substance: CETIRIZINE HYDROCHLORIDE
     Dosage: 20 MG, EACH EVENING
     Route: 065
  31. TARGIN [Concomitant]
     Active Substance: NALOXONE HYDROCHLORIDE\OXYCODONE HYDROCHLORIDE
     Dosage: 2 DF, BID
     Route: 065
  32. TICAGRELOR [Concomitant]
     Active Substance: TICAGRELOR
     Dosage: 90 MG, BID
     Route: 065
  33. XYLOCAINE [Concomitant]
     Active Substance: LIDOCAINE HYDROCHLORIDE
     Indication: PRURITUS
     Dosage: 1 DF, PRN
     Route: 065
  34. GENOTROPIN [Suspect]
     Active Substance: SOMATROPIN
     Indication: SECONDARY ADRENOCORTICAL INSUFFICIENCY
     Dosage: 0.4 MG, EACH EVENING
     Route: 058
     Dates: start: 201604
  35. CORTEF [Suspect]
     Active Substance: HYDROCORTISONE
     Dosage: 50 MG, EACH EVENING
     Route: 048
  36. CYTOMEL [Suspect]
     Active Substance: LIOTHYRONINE SODIUM
     Indication: PRODUCT USED FOR UNKNOWN INDICATION
     Dosage: 5 UG, QD
     Route: 065
     Dates: start: 201606
  37. METOPROLOL. [Concomitant]
     Active Substance: METOPROLOL
     Dosage: 25 MG, BID
     Route: 065
     Dates: start: 201602
  38. PROBIOTIC                          /06395501/ [Concomitant]
     Active Substance: BIFIDOBACTERIUM ANIMALIS SUBSP. LACTIS
     Dosage: 1 DF, EACH MORNING
     Route: 065
  39. BASAGLAR [Suspect]
     Active Substance: INSULIN GLARGINE
     Indication: PRODUCT USED FOR UNKNOWN INDICATION
     Dosage: 80 U, EACH EVENING
     Route: 058
     Dates: start: 201604
  40. BASAGLAR [Suspect]
     Active Substance: INSULIN GLARGINE
     Dosage: 18 U, EACH EVENING
     Route: 058
  41. CORTEF [Suspect]
     Active Substance: HYDROCORTISONE
     Indication: ADRENAL INSUFFICIENCY
     Dosage: 20 MG, EACH MORNING
     Route: 048
     Dates: start: 2014
  42. CORTEF [Suspect]
     Active Substance: HYDROCORTISONE
     Dosage: 5 MG, OTHER
     Route: 048
  43. PREDNISOLONE. [Concomitant]
     Active Substance: PREDNISOLONE
     Indication: HYPOPITUITARISM
     Dosage: 7.5 MG, QD
     Route: 065
     Dates: start: 2012
  44. CRESTOR [Concomitant]
     Active Substance: ROSUVASTATIN CALCIUM
     Dosage: 10 MG, EACH EVENING
     Route: 048
  45. GLUMETZA [Concomitant]
     Active Substance: METFORMIN HYDROCHLORIDE
     Dosage: 500 MG, TID
     Route: 065
     Dates: start: 2007
  46. PERCOCET                           /00446701/ [Concomitant]
     Active Substance: ACETAMINOPHEN\OXYCODONE HYDROCHLORIDE\OXYCODONE TEREPHTHALATE
     Indication: PAIN
     Dosage: 2 DF, QID
     Route: 065
  47. METFORMIN [Concomitant]
     Active Substance: METFORMIN HYDROCHLORIDE
     Dosage: 500 MG, BID
     Route: 048
  48. GENOTROPIN [Suspect]
     Active Substance: SOMATROPIN
     Indication: HYPOPITUITARISM
     Dosage: 0.5 MG, QD
     Route: 058
  49. GLUMETZA [Concomitant]
     Active Substance: METFORMIN HYDROCHLORIDE
     Dosage: 500 MG, BID
     Route: 065
  50. GLUCOBAY [Concomitant]
     Active Substance: ACARBOSE
     Dosage: 100 MG, TID
     Route: 065
  51. DIAZEPAM. [Concomitant]
     Active Substance: DIAZEPAM
     Dosage: 5 MG, EACH EVENING
     Route: 065
  52. ZINC. [Concomitant]
     Active Substance: ZINC
     Dosage: 1 DF, QD
     Route: 065
  53. B COMPLEX                          /00322001/ [Concomitant]
     Active Substance: CALCIUM PANTOTHENATE\CYANOCOBALAMIN\NIACINAMIDE\PYRIDOXINE HYDROCHLORIDE\RIBOFLAVIN\THIAMINE HYDROCHLORIDE
     Dosage: UNK, UNKNOWN
     Route: 065
  54. VITAMIN B12 [Concomitant]
     Active Substance: CYANOCOBALAMIN
     Dosage: 2500 UG, TWICE A WEEK
     Route: 065
  55. VICTOZA [Concomitant]
     Active Substance: LIRAGLUTIDE
     Dosage: 0.5 MG, EACH EVENING
     Route: 058
     Dates: start: 201702

REACTIONS (9)
  - Chronic kidney disease [Unknown]
  - Bone disorder [Not Recovered/Not Resolved]
  - Tendonitis [Recovered/Resolved]
  - Osteoarthritis [Not Recovered/Not Resolved]
  - Osteonecrosis [Not Recovered/Not Resolved]
  - Cardiac disorder [Unknown]
  - Asthenia [Unknown]
  - Coronary artery disease [Unknown]
  - Pain [Unknown]

NARRATIVE: CASE EVENT DATE: 201605
